FAERS Safety Report 5408464-1 (Version None)
Quarter: 2007Q3

REPORT INFORMATION
  Report Type: 
  Country: None (occurrence: None)
  Receive Date: 20070808
  Receipt Date: 20070730
  Transmission Date: 20080115
  Serious: Yes (Hospitalization)
  Sender: FDA-Public Use
  Company Number: US-JNJFOC-20070700577

PATIENT
  Sex: Female

DRUGS (3)
  1. RISPERDAL CONSTA [Suspect]
     Indication: SCHIZOPHRENIA
     Route: 030
  2. BENZTROPINE [Concomitant]
  3. LITHIUM CARBONATE [Concomitant]

REACTIONS (3)
  - CATATONIA [None]
  - CONFUSIONAL STATE [None]
  - TACHYCARDIA [None]
